FAERS Safety Report 8392983-2 (Version None)
Quarter: 2012Q2

REPORT INFORMATION
  Report Type: 
  Country: None (occurrence: None)
  Receive Date: 20120529
  Receipt Date: 20120521
  Transmission Date: 20120825
  Serious: Yes (Hospitalization)
  Sender: FDA-Public Use
  Company Number: JP-PFIZER INC-2012102340

PATIENT
  Age: 42 Year
  Sex: Female

DRUGS (4)
  1. ALPROSTADIL [Suspect]
     Dosage: UNK
  2. CYCLOPHOSPHAMIDE [Suspect]
     Dosage: UNK
  3. AMLODIPINE [Suspect]
     Dosage: 5 MG, 1X/DAY
     Route: 048
     Dates: start: 20120324
  4. PLAVIX [Suspect]
     Dosage: UNK
     Route: 048

REACTIONS (1)
  - INTERSTITIAL LUNG DISEASE [None]
